FAERS Safety Report 12839257 (Version 3)
Quarter: 2017Q2

REPORT INFORMATION
  Report Type: Spontaneous
  Country: US (occurrence: US)
  Receive Date: 20161012
  Receipt Date: 20170606
  Transmission Date: 20170830
  Serious: Yes (Hospitalization)
  Sender: FDA-Public Use
  Company Number: US-PFIZER INC-2016470681

PATIENT
  Age: 82 Year
  Sex: Female
  Weight: 72.56 kg

DRUGS (2)
  1. MAGNESIUM SULFATE. [Suspect]
     Active Substance: MAGNESIUM SULFATE
     Indication: MUSCLE SPASMS
     Dosage: 400 MG, UNK
     Route: 048
     Dates: start: 20160920
  2. NORVASC [Concomitant]
     Active Substance: AMLODIPINE BESYLATE
     Dosage: 5 MG, DAILY

REACTIONS (1)
  - Drug ineffective [Recovered/Resolved]
